FAERS Safety Report 16362265 (Version 1)
Quarter: 2019Q3

REPORT INFORMATION
  Report Type: Spontaneous
  Country: US (occurrence: US)
  Receive Date: 20190526
  Receipt Date: 20190526
  Transmission Date: 20191004
  Serious: No
  Sender: FDA-Public Use
  Company Number: None

PATIENT
  Age: 64 Year
  Sex: Male
  Weight: 69.3 kg

DRUGS (1)
  1. SILODOSIN 8MG CAPSULE [Suspect]
     Active Substance: SILODOSIN
     Indication: DRUG THERAPY
     Dosage: ?          QUANTITY:1 CAPSULE(S);?
     Route: 048

REACTIONS (4)
  - Prostatitis [None]
  - Drug ineffective [None]
  - Symptom recurrence [None]
  - Therapeutic response changed [None]

NARRATIVE: CASE EVENT DATE: 20190526
